FAERS Safety Report 23474552 (Version 1)
Quarter: 2024Q1

REPORT INFORMATION
  Report Type: Report from Study
  Country: US (occurrence: US)
  Receive Date: 20240204
  Receipt Date: 20240204
  Transmission Date: 20240410
  Serious: Yes (Other)
  Sender: FDA-Public Use
  Company Number: US-EXELIXIS-CABO-23063176

PATIENT
  Age: 68 Year
  Sex: Male

DRUGS (10)
  1. CABOMETYX [Suspect]
     Active Substance: CABOZANTINIB S-MALATE
     Indication: Renal cell carcinoma
     Dosage: 60 MG
     Route: 048
     Dates: start: 202211
  2. CABOMETYX [Suspect]
     Active Substance: CABOZANTINIB S-MALATE
     Indication: Ureteric cancer
     Dosage: 40 MG, QD
     Route: 048
     Dates: start: 202303
  3. CABOMETYX [Suspect]
     Active Substance: CABOZANTINIB S-MALATE
     Indication: Metastases to lung
     Dosage: 40 MG, QD
     Route: 048
     Dates: end: 20230730
  4. IRON [Suspect]
     Active Substance: IRON
     Indication: Anaemia
     Dosage: UNK
  5. VITAMIN C [Concomitant]
     Active Substance: ASCORBIC ACID
  6. VITAMINS [Concomitant]
     Active Substance: VITAMINS
  7. ATORVASTATIN [Concomitant]
     Active Substance: ATORVASTATIN
  8. METFORMIN [Concomitant]
     Active Substance: METFORMIN HYDROCHLORIDE
  9. PROBIOTICS NOS [Concomitant]
     Active Substance: PROBIOTICS NOS
  10. ASPIRIN [Concomitant]
     Active Substance: ASPIRIN

REACTIONS (12)
  - Hypothyroidism [Unknown]
  - Tumour necrosis [Unknown]
  - Metastases to lung [Unknown]
  - Skin plaque [Not Recovered/Not Resolved]
  - Epistaxis [Unknown]
  - Diarrhoea [Recovering/Resolving]
  - Blood pressure increased [Recovering/Resolving]
  - Palmar-plantar erythrodysaesthesia syndrome [Unknown]
  - Genital infection fungal [Recovering/Resolving]
  - Prostatomegaly [Unknown]
  - Prostatitis [Unknown]
  - Constipation [Recovered/Resolved]

NARRATIVE: CASE EVENT DATE: 20230707
